FAERS Safety Report 6572380-2 (Version None)
Quarter: 2010Q1

REPORT INFORMATION
  Report Type: 
  Country: None (occurrence: None)
  Receive Date: 20100205
  Receipt Date: 20100202
  Transmission Date: 20100710
  Serious: Yes (Death)
  Sender: FDA-Public Use
  Company Number: US-BRISTOL-MYERS SQUIBB COMPANY-14900807

PATIENT
  Sex: Male

DRUGS (2)
  1. COUMADIN [Suspect]
  2. AVALIDE [Suspect]

REACTIONS (1)
  - POST PROCEDURAL PULMONARY EMBOLISM [None]
